FAERS Safety Report 10555209 (Version 7)
Quarter: 2019Q1

REPORT INFORMATION
  Report Type: Report from Study
  Country: US (occurrence: US)
  Receive Date: 20141030
  Receipt Date: 20190326
  Transmission Date: 20190417
  Serious: Yes (Life-Threatening, Hospitalization, Other)
  Sender: FDA-Public Use
  Company Number: US-SA-2014SA030463

PATIENT
  Age: 50 Year
  Sex: Male

DRUGS (1)
  1. TERIFLUNOMIDE. [Suspect]
     Active Substance: TERIFLUNOMIDE
     Indication: MULTIPLE SCLEROSIS
     Dosage: 14 MG,QD
     Route: 048
     Dates: start: 20130606

REACTIONS (13)
  - Dizziness [Not Recovered/Not Resolved]
  - Unevaluable event [Unknown]
  - Myocardial infarction [Recovering/Resolving]
  - Muscle spasms [Unknown]
  - Sleep disorder [Unknown]
  - Hypoaesthesia [Unknown]
  - Chest pain [Unknown]
  - Multiple sclerosis relapse [Unknown]
  - Multiple sclerosis relapse [Not Recovered/Not Resolved]
  - Cough [Not Recovered/Not Resolved]
  - Blood pressure increased [Unknown]
  - Confusional state [Unknown]
  - Visual impairment [Not Recovered/Not Resolved]

NARRATIVE: CASE EVENT DATE: 201502
